FAERS Safety Report 5597971-7 (Version None)
Quarter: 2008Q1

REPORT INFORMATION
  Report Type: 
  Country: None (occurrence: None)
  Receive Date: 20080116
  Receipt Date: 20080107
  Transmission Date: 20080703
  Serious: Yes (Other)
  Sender: FDA-Public Use
  Company Number: GXKR2008JP00556

PATIENT
  Age: 58 Year
  Sex: Female

DRUGS (7)
  1. CYCLOSPORINE [Suspect]
     Indication: IMMUNOSUPPRESSION
     Dosage: 200MG; FROM POSTOPERATIVE DAY 22; 100 MG, FROM POSTOPERATIVE DAY 464
  2. TACROLIMUS [Suspect]
     Indication: IMMUNOSUPPRESSION
  3. PREDNISONE TAB [Concomitant]
  4. MYCOPHENOLATE MOFETIL [Concomitant]
  5. INTRON A [Concomitant]
  6. RIBAVIRIN [Concomitant]
  7. PEGINTERFERON ALFA-2A (PEGINTERFERON ALFA-2A) [Concomitant]

REACTIONS (8)
  - ALANINE AMINOTRANSFERASE INCREASED [None]
  - BALANCE DISORDER [None]
  - BLOOD ALKALINE PHOSPHATASE INCREASED [None]
  - BLOOD BILIRUBIN INCREASED [None]
  - CEREBELLAR ATAXIA [None]
  - DYSARTHRIA [None]
  - HEARING IMPAIRED [None]
  - INTENTION TREMOR [None]
